FAERS Safety Report 9905881 (Version 3)
Quarter: 2014Q1

REPORT INFORMATION
  Report Type: Spontaneous
  Country: ES (occurrence: ES)
  Receive Date: 20140218
  Receipt Date: 20140310
  Transmission Date: 20141002
  Serious: Yes (Hospitalization, Other)
  Sender: FDA-Public Use
  Company Number: ES-JNJFOC-20140208434

PATIENT
  Age: 43 Year
  Sex: Male

DRUGS (3)
  1. STELARA [Suspect]
     Indication: PSORIASIS
     Route: 058
  2. STELARA [Suspect]
     Indication: PSORIASIS
     Route: 058
     Dates: start: 20120315
  3. ACETYLSALICYLIC ACID [Concomitant]
     Route: 065

REACTIONS (2)
  - Fibula fracture [Recovered/Resolved]
  - Pulmonary embolism [Recovered/Resolved]
